FAERS Safety Report 23318461 (Version 1)
Quarter: 2023Q4

REPORT INFORMATION
  Report Type: Spontaneous
  Country: IT (occurrence: IT)
  Receive Date: 20231220
  Receipt Date: 20231220
  Transmission Date: 20240110
  Serious: Yes (Hospitalization, Other)
  Sender: FDA-Public Use
  Company Number: IT-AUROBINDO-AUR-APL-2018-005174

PATIENT
  Age: 43 Year
  Sex: Male

DRUGS (8)
  1. PREGABALIN [Suspect]
     Active Substance: PREGABALIN
     Indication: Back pain
     Dosage: 1800 MILLIGRAM, ONCE A DAY (1800 MG,QD)
     Route: 065
  2. PREGABALIN [Suspect]
     Active Substance: PREGABALIN
     Indication: Radicular pain
     Dosage: 225 MILLIGRAM, ONCE A DAY (1800 TO 225 MG/DAY)
     Route: 065
  3. PREGABALIN [Suspect]
     Active Substance: PREGABALIN
     Indication: Anxiety
     Dosage: 300 MILLIGRAM, ONCE A DAY
     Route: 065
  4. PREGABALIN [Suspect]
     Active Substance: PREGABALIN
     Indication: Alcoholism
     Dosage: LATER INCREASED TO 1800 MG/DAY WITHOUT MEDICAL PERMISSION
     Route: 065
  5. PREGABALIN [Suspect]
     Active Substance: PREGABALIN
     Indication: Alcoholism
  6. PREGABALIN [Suspect]
     Active Substance: PREGABALIN
     Indication: Back pain
  7. VENLAFAXINE [Suspect]
     Active Substance: VENLAFAXINE HYDROCHLORIDE
     Indication: Anxiety disorder
     Dosage: 75 MILLIGRAM, ONCE A DAY
     Route: 065
  8. VALPROATE SODIUM [Concomitant]
     Active Substance: VALPROATE SODIUM
     Indication: Anxiety disorder
     Dosage: 500 MILLIGRAM, ONCE A DAY
     Route: 065

REACTIONS (5)
  - Drug dependence [Recovering/Resolving]
  - Intentional overdose [Recovering/Resolving]
  - Drug tolerance [Recovering/Resolving]
  - Drug abuse [Recovering/Resolving]
  - Intentional product misuse [Recovering/Resolving]
